FAERS Safety Report 16555493 (Version 1)
Quarter: 2019Q3

REPORT INFORMATION
  Report Type: Report from Study
  Country: US (occurrence: US)
  Receive Date: 20190710
  Receipt Date: 20190710
  Transmission Date: 20191004
  Serious: Yes (Other)
  Sender: FDA-Public Use
  Company Number: PHHY2019US140252

PATIENT
  Age: 16 Year
  Sex: Male

DRUGS (1)
  1. KYMRIAH [Suspect]
     Active Substance: TISAGENLECLEUCEL
     Indication: ACUTE LYMPHOCYTIC LEUKAEMIA
     Dosage: ONCE/SINGLE
     Route: 041
     Dates: start: 201502, end: 201502

REACTIONS (7)
  - Pyrexia [Recovered/Resolved]
  - Parosmia [Recovered/Resolved]
  - Cataract [Unknown]
  - Pulmonary function test decreased [Unknown]
  - B-cell aplasia [Unknown]
  - Taste disorder [Recovered/Resolved]
  - Feeling abnormal [Recovered/Resolved]

NARRATIVE: CASE EVENT DATE: 201502
